FAERS Safety Report 9277014 (Version 3)
Quarter: 2013Q2

REPORT INFORMATION
  Report Type: Spontaneous
  Country: JP (occurrence: JP)
  Receive Date: 20130507
  Receipt Date: 20130529
  Transmission Date: 20140414
  Serious: Yes (Other)
  Sender: FDA-Public Use
  Company Number: JP-B.I. PHARMACEUTICALS,INC./RIDGEFIELD-2013-BI-11947GD

PATIENT
  Age: 74 Year
  Sex: Male
  Weight: 43 kg

DRUGS (7)
  1. PRAMIPEXOLE [Suspect]
     Indication: PARKINSON^S DISEASE
     Dates: start: 200711
  2. AMANTADINE [Suspect]
     Indication: PARKINSON^S DISEASE
     Dates: start: 200711
  3. MAPELOR [Suspect]
     Indication: PROSTATOMEGALY
     Dates: start: 201010
  4. LEVODOPA [Suspect]
     Indication: PARKINSON^S DISEASE
     Dates: start: 200711
  5. DROXIDOPA [Suspect]
     Indication: PARKINSON^S DISEASE
     Dates: start: 200711
  6. ZONISAMIDE [Suspect]
     Indication: PARKINSON^S DISEASE
     Dates: start: 201012
  7. SOLIFENACIN [Suspect]
     Indication: HYPERTONIC BLADDER
     Dates: start: 201010

REACTIONS (3)
  - Interstitial lung disease [Recovered/Resolved]
  - Hepatitis B [Recovered/Resolved]
  - Hepatitis [Recovered/Resolved]
